FAERS Safety Report 9029944 (Version 2)
Quarter: 2013Q1

REPORT INFORMATION
  Report Type: Spontaneous
  Country: US (occurrence: US)
  Receive Date: 20130125
  Receipt Date: 20130212
  Transmission Date: 20140127
  Serious: Yes (Hospitalization, Other)
  Sender: FDA-Public Use
  Company Number: US-BIOGENIDEC-2013BI006320

PATIENT
  Age: 56 Year
  Sex: Female

DRUGS (1)
  1. TYSABRI [Suspect]
     Indication: MULTIPLE SCLEROSIS
     Route: 042
     Dates: start: 20111208

REACTIONS (5)
  - Pulmonary mass [Unknown]
  - Convulsion [Recovered/Resolved]
  - Pneumonia [Recovered/Resolved]
  - Concussion [Recovered/Resolved]
  - Road traffic accident [Recovered/Resolved]
